FAERS Safety Report 11119119 (Version 1)
Quarter: 2015Q2

REPORT INFORMATION
  Report Type: Spontaneous
  Country: IT (occurrence: IT)
  Receive Date: 20150518
  Receipt Date: 20150518
  Transmission Date: 20150821
  Serious: Yes (Other)
  Sender: FDA-Public Use
  Company Number: PHHY2015IT056632

PATIENT
  Age: 51 Year
  Sex: Male

DRUGS (3)
  1. LEVODOPA [Concomitant]
     Active Substance: LEVODOPA
     Indication: PARKINSON^S DISEASE
     Dosage: 700 MG/DAILY
     Route: 065
  2. PRAMIPEXOLE [Suspect]
     Active Substance: PRAMIPEXOLE
     Indication: PARKINSON^S DISEASE
     Dosage: 0.7 MG, QID
     Route: 065
  3. PRAMIPEXOLE [Suspect]
     Active Substance: PRAMIPEXOLE
     Indication: PARKINSON^S DISEASE
     Dosage: 3.15 MG DAILY
     Route: 065

REACTIONS (7)
  - Dopamine dysregulation syndrome [Unknown]
  - Hypomania [Unknown]
  - Depressive symptom [Unknown]
  - Mood altered [Unknown]
  - On and off phenomenon [Unknown]
  - Dyskinesia [Unknown]
  - Anxiety [Unknown]
